FAERS Safety Report 24809786 (Version 1)
Quarter: 2025Q1

REPORT INFORMATION
  Report Type: Spontaneous
  Country: US (occurrence: US)
  Receive Date: 20250106
  Receipt Date: 20250106
  Transmission Date: 20250408
  Serious: No
  Sender: AMGEN
  Company Number: US-AMGEN-USASP2024256787

PATIENT
  Age: 86 Year
  Sex: Female

DRUGS (7)
  1. PREDNISONE [Suspect]
     Active Substance: PREDNISONE
     Indication: Colitis microscopic
     Route: 065
  2. INFLIXIMAB [Suspect]
     Active Substance: INFLIXIMAB
     Indication: Colitis microscopic
     Route: 065
  3. ADALIMUMAB [Suspect]
     Active Substance: ADALIMUMAB
     Indication: Colitis microscopic
     Route: 065
  4. BUDESONIDE [Concomitant]
     Active Substance: BUDESONIDE
     Indication: Colitis microscopic
     Route: 065
  5. BISMUTH SUBSALICYLATE [Concomitant]
     Active Substance: BISMUTH SUBSALICYLATE
     Indication: Colitis microscopic
  6. MESALAMINE [Concomitant]
     Active Substance: MESALAMINE
     Indication: Colitis microscopic
  7. CHOLESTYRAMINE [Concomitant]
     Active Substance: CHOLESTYRAMINE
     Indication: Colitis microscopic
     Route: 065

REACTIONS (3)
  - Drug ineffective for unapproved indication [Unknown]
  - Off label use [Unknown]
  - Rash [Unknown]
